FAERS Safety Report 7480951-4 (Version None)
Quarter: 2011Q2

REPORT INFORMATION
  Report Type: 
  Country: None (occurrence: None)
  Receive Date: 20110506
  Receipt Date: 20110420
  Transmission Date: 20111010
  Serious: Yes (Death, Hospitalization)
  Sender: FDA-Public Use
  Company Number: 2009000392

PATIENT
  Age: 82 Year
  Sex: Female
  Weight: 33.4 kg

DRUGS (7)
  1. RINDERON (BETAMETHASONE) [Concomitant]
  2. SELBEX (TEPRENONE) [Concomitant]
  3. RIZE (CLOTIAZEPAM) [Concomitant]
  4. AMOXAPINE [Concomitant]
  5. TAKEPRON (LANSOPRAZOLE) [Concomitant]
  6. DIOVAN [Concomitant]
  7. ERLOTINIB HYDROCHLORIDE [Suspect]
     Indication: LUNG ADENOCARCINOMA
     Dosage: 150 MG, QD, ORAL
     Route: 048
     Dates: start: 20081119, end: 20081222

REACTIONS (4)
  - ANAEMIA [None]
  - NEOPLASM PROGRESSION [None]
  - DEPRESSED LEVEL OF CONSCIOUSNESS [None]
  - LUNG ADENOCARCINOMA [None]
